FAERS Safety Report 7639176 (Version 2)
Quarter: 2012Q4

REPORT INFORMATION
  Report Type: 
  Country: IN (occurrence: IN)
  Receive Date: 20101025
  Receipt Date: 20120904
  Transmission Date: 20130627
  Serious: Yes (Other)
  Sender: FDA-Public Use
  Company Number: GXKR2010IN11710

PATIENT
  Age: 43 Year
  Sex: Male

DRUGS (1)
  1. METRONIDAZOLE [Suspect]
     Indication: HEPATIC AMOEBIASIS
     Dosage: 400 mg, TID
     Route: 048

REACTIONS (7)
  - Encephalopathy [Recovered/Resolved]
  - Dysarthria [Recovered/Resolved]
  - Muscular weakness [Recovered/Resolved]
  - Vertigo [Recovered/Resolved]
  - Ataxia [Recovered/Resolved]
  - Nystagmus [Recovered/Resolved]
  - Nervous system disorder [Recovered/Resolved]
